FAERS Safety Report 4844888-9 (Version None)
Quarter: 2005Q4

REPORT INFORMATION
  Report Type: 
  Country: None (occurrence: None)
  Receive Date: 20051123
  Receipt Date: 20051114
  Transmission Date: 20060501
  Serious: Yes (Death, Other)
  Sender: FDA-Public Use
  Company Number: 2005-11-0797

PATIENT
  Age: 74 Year
  Sex: Male
  Weight: 90 kg

DRUGS (5)
  1. TEMOZOLOMIDE CAPSULES [Suspect]
     Indication: METASTASES TO CENTRAL NERVOUS SYSTEM
     Dosage: 165 MG ORAL
     Route: 048
     Dates: start: 20051103, end: 20051113
  2. RADIATION THERAPY [Concomitant]
  3. PERINDOPRIL [Concomitant]
  4. AMIODARONE HCL [Concomitant]
  5. OMEPRAZOLE [Concomitant]

REACTIONS (5)
  - FALL [None]
  - RESPIRATORY ARREST [None]
  - SUDDEN DEATH [None]
  - TRAUMATIC BRAIN INJURY [None]
  - VENTRICULAR ARRHYTHMIA [None]
